FAERS Safety Report 17420347 (Version 7)
Quarter: 2020Q4

REPORT INFORMATION
  Report Type: Spontaneous
  Country: US (occurrence: US)
  Receive Date: 20200214
  Receipt Date: 20201204
  Transmission Date: 20210113
  Serious: No
  Sender: FDA-Public Use
  Company Number: US-VERTEX PHARMACEUTICALS-2020-002614

PATIENT
  Age: 71 Year
  Sex: Female
  Weight: 50 kg

DRUGS (23)
  1. SODIUM CHLORIDE. [Concomitant]
     Active Substance: SODIUM CHLORIDE
  2. GENTAMICIN. [Concomitant]
     Active Substance: GENTAMICIN
  3. PROGESTERONE. [Concomitant]
     Active Substance: PROGESTERONE
     Dosage: UNK
  4. CAYSTON [Concomitant]
     Active Substance: AZTREONAM
  5. FLONASE [Concomitant]
     Active Substance: FLUTICASONE PROPIONATE
  6. SULFACETAMIDE. [Concomitant]
     Active Substance: SULFACETAMIDE
  7. MIRALAX [Concomitant]
     Active Substance: POLYETHYLENE GLYCOL 3350
  8. TOBRAMYCIN. [Concomitant]
     Active Substance: TOBRAMYCIN
  9. MAGNESIUM [Concomitant]
     Active Substance: MAGNESIUM
  10. TRETINOIN. [Concomitant]
     Active Substance: TRETINOIN
  11. TRIKAFTA [Suspect]
     Active Substance: ELEXACAFTOR\IVACAFTOR\TEZACAFTOR
     Indication: CYSTIC FIBROSIS
     Dosage: 2 TABS (100MG ELEXACAFTOR/ 50 MG TEZACAFTOR/ 75 MG IVACAFTOR) AM; 1 TAB (150 MG IVACAFTOR) PM
     Route: 048
     Dates: start: 20200103
  12. ADVAIR HFA [Concomitant]
     Active Substance: FLUTICASONE PROPIONATE\SALMETEROL XINAFOATE
  13. ALLEGRA [Concomitant]
     Active Substance: FEXOFENADINE HYDROCHLORIDE
  14. ZETIA [Concomitant]
     Active Substance: EZETIMIBE
  15. ESTRADIOL. [Concomitant]
     Active Substance: ESTRADIOL
  16. COENZYME Q10 [Concomitant]
     Active Substance: DIETARY SUPPLEMENT\UBIDECARENONE
  17. LIVALO [Concomitant]
     Active Substance: PITAVASTATIN CALCIUM
  18. VITAMIN D [COLECALCIFEROL] [Concomitant]
     Active Substance: CHOLECALCIFEROL
  19. CLINDAMYCIN. [Concomitant]
     Active Substance: CLINDAMYCIN
  20. ALBUTEROL [SALBUTAMOL] [Concomitant]
     Active Substance: ALBUTEROL
  21. FEMRING [Concomitant]
     Active Substance: ESTRADIOL ACETATE
  22. NIACINAMIDE [Concomitant]
     Active Substance: NIACINAMIDE
  23. CALCIUM [Concomitant]
     Active Substance: CALCIUM

REACTIONS (5)
  - Rash [Recovered/Resolved]
  - Peripheral swelling [Recovered/Resolved]
  - Joint swelling [Recovered/Resolved]
  - Acne [Recovering/Resolving]
  - Pruritus [Recovering/Resolving]

NARRATIVE: CASE EVENT DATE: 202001
